FAERS Safety Report 18507915 (Version 1)
Quarter: 2020Q4

REPORT INFORMATION
  Report Type: Spontaneous
  Country: US (occurrence: US)
  Receive Date: 20201116
  Receipt Date: 20201116
  Transmission Date: 20210114
  Serious: Yes (Other)
  Sender: FDA-Public Use
  Company Number: US-PURDUE-USA-2020-0176469

PATIENT
  Sex: Male

DRUGS (12)
  1. OXYCODONE HCL TABLETS (RHODES 91-490) [Suspect]
     Active Substance: OXYCODONE HYDROCHLORIDE
     Indication: SKIN LACERATION
     Dosage: UNK
     Route: 048
     Dates: start: 20110113
  2. HEROIN [Suspect]
     Active Substance: DIAMORPHINE
     Indication: PRODUCT USED FOR UNKNOWN INDICATION
     Route: 065
  3. MORPHINE SULFATE EXTENDED-RELEASE TABLETS (RHODES 74-769, 74-862) [Suspect]
     Active Substance: MORPHINE SULFATE
     Indication: SKIN LACERATION
     Dosage: UNK
     Route: 048
     Dates: start: 20110113
  4. TRAMADOL. [Suspect]
     Active Substance: TRAMADOL
     Indication: SKIN LACERATION
     Dosage: UNK
     Route: 048
     Dates: start: 20110113
  5. INDERAL [Concomitant]
     Active Substance: PROPRANOLOL HYDROCHLORIDE
     Indication: PRODUCT USED FOR UNKNOWN INDICATION
     Route: 065
  6. DILAUDID [Suspect]
     Active Substance: HYDROMORPHONE HYDROCHLORIDE
     Indication: SKIN LACERATION
     Dosage: UNK
     Route: 048
     Dates: start: 20110113
  7. VALIUM [Concomitant]
     Active Substance: DIAZEPAM
     Indication: PRODUCT USED FOR UNKNOWN INDICATION
     Route: 065
  8. HYDROMORPHONE HCL (SIMILAR TO 19-892) [Suspect]
     Active Substance: HYDROMORPHONE HYDROCHLORIDE
     Indication: SKIN LACERATION
     Dosage: UNK
     Route: 048
     Dates: start: 20110113
  9. PRILOSEC [Concomitant]
     Active Substance: OMEPRAZOLE MAGNESIUM
     Indication: PRODUCT USED FOR UNKNOWN INDICATION
     Route: 065
  10. OXYCODONE HCL CR TABLETS (SIMILAR TO NDA 22-272) [Suspect]
     Active Substance: OXYCODONE HYDROCHLORIDE
     Indication: SKIN LACERATION
     Dosage: UNK
     Route: 048
     Dates: start: 20110113
  11. CHANTIX [Concomitant]
     Active Substance: VARENICLINE TARTRATE
     Indication: TOBACCO ABUSE
     Route: 065
  12. XANAX [Concomitant]
     Active Substance: ALPRAZOLAM
     Indication: ANXIETY
     Route: 065

REACTIONS (8)
  - Bronchitis [Unknown]
  - Impaired ability to use machinery [Unknown]
  - Cellulitis [Unknown]
  - Drug dependence [Unknown]
  - Panic attack [Unknown]
  - Anxiety [Unknown]
  - Overdose [Unknown]
  - Hepatitis C [Unknown]

NARRATIVE: CASE EVENT DATE: 20151219
